FAERS Safety Report 19494952 (Version 1)
Quarter: 2021Q3

REPORT INFORMATION
  Report Type: Spontaneous
  Country: DE (occurrence: DE)
  Receive Date: 20210706
  Receipt Date: 20210706
  Transmission Date: 20211014
  Serious: Yes (Hospitalization)
  Sender: FDA-Public Use
  Company Number: DE-009507513-2107DEU000014

PATIENT
  Age: 43 Year
  Sex: Female

DRUGS (9)
  1. PANTOPRAZOLE [Concomitant]
     Active Substance: PANTOPRAZOLE
     Dosage: 40 MG, 1?0?0?0
  2. PEMETREXED. [Suspect]
     Active Substance: PEMETREXED
     Dosage: LAST 13112019
  3. FOLIC ACID. [Concomitant]
     Active Substance: FOLIC ACID
     Dosage: 10 MG, 1?0?0?0
  4. PEMBROLIZUMAB. [Suspect]
     Active Substance: PEMBROLIZUMAB
     Dosage: LAST 13112019
  5. CISPLATIN. [Suspect]
     Active Substance: CISPLATIN
     Dosage: LAST 13112019
  6. VITAMIN D [COLECALCIFEROL] [Concomitant]
     Active Substance: CHOLECALCIFEROL
     Dosage: 1000 IE, 1?0?0?0
  7. LACTULOSE. [Concomitant]
     Active Substance: LACTULOSE
     Dosage: 1X
  8. METAMIZOLE [Concomitant]
     Active Substance: METAMIZOLE
     Dosage: 1 G, 4X
  9. DIMENHYDRINAT [Concomitant]
     Active Substance: DIMENHYDRINATE
     Dosage: 50 MG, 4X

REACTIONS (4)
  - Pyrexia [Unknown]
  - Musculoskeletal pain [Unknown]
  - Chills [Unknown]
  - General physical health deterioration [Unknown]
